APPROVED DRUG PRODUCT: AMINOCAPROIC ACID
Active Ingredient: AMINOCAPROIC ACID
Strength: 0.25GM/ML
Dosage Form/Route: SOLUTION;ORAL
Application: A212814 | Product #001
Applicant: VISTAPHARM LLC
Approved: Feb 26, 2020 | RLD: No | RS: No | Type: DISCN